FAERS Safety Report 15318982 (Version 1)
Quarter: 2018Q3

REPORT INFORMATION
  Report Type: Spontaneous
  Country: US (occurrence: US)
  Receive Date: 20180820
  Receipt Date: 20180820
  Transmission Date: 20181010
  Serious: Yes (Hospitalization)
  Sender: FDA-Public Use
  Company Number: None

PATIENT
  Sex: Female

DRUGS (9)
  1. KYPROLIS [Suspect]
     Active Substance: CARFILZOMIB
     Indication: PLASMA CELL MYELOMA
     Dosage: OTHER FREQUENCY:DAYS 1,2,8,9,15+16;?
     Route: 042
     Dates: start: 20160119
  2. DULCOLAX NOS [Concomitant]
     Active Substance: BISACODYL OR DOCUSATE SODIUM
     Dates: start: 20160411
  3. ACYCLOVIR. [Concomitant]
     Active Substance: ACYCLOVIR
     Dates: start: 20180411
  4. CENTRUM [Concomitant]
     Active Substance: VITAMINS
     Dates: start: 20160411
  5. LORAZAPAM [Concomitant]
     Active Substance: LORAZEPAM
     Dates: start: 20160411
  6. DEXAMETH PHOS [Suspect]
     Active Substance: DEXAMETHASONE SODIUM PHOSPHATE
     Indication: PLASMA CELL MYELOMA
     Dosage: OTHER FREQUENCY:DAYS 1,2,8,9,15+16;?
     Route: 042
     Dates: start: 20170309
  7. B12?ACTIVE [Concomitant]
     Dates: start: 20160411
  8. FISH OIL [Concomitant]
     Active Substance: FISH OIL
     Dates: start: 20160411
  9. VITAMIN C [Concomitant]
     Active Substance: ASCORBIC ACID
     Dates: start: 20160411

REACTIONS (2)
  - Disease progression [None]
  - Treatment noncompliance [None]
